FAERS Safety Report 10854191 (Version 1)
Quarter: 2015Q1

REPORT INFORMATION
  Report Type: Spontaneous
  Country: US (occurrence: US)
  Receive Date: 20150223
  Receipt Date: 20150223
  Transmission Date: 20150721
  Serious: No
  Sender: FDA-Public Use
  Company Number: US-CELGENEUS-163-21880-14052693

PATIENT
  Sex: Male
  Weight: 59.9 kg

DRUGS (1)
  1. REVLIMID [Suspect]
     Active Substance: LENALIDOMIDE
     Indication: PLASMA CELL MYELOMA
     Dosage: 10 MILLIGRAM
     Route: 048
     Dates: start: 20131002, end: 20140208

REACTIONS (4)
  - Weight increased [Unknown]
  - Drug ineffective [Unknown]
  - Plasma cell myeloma [Unknown]
  - Hyperphagia [Unknown]

NARRATIVE: CASE EVENT DATE: 2013
